FAERS Safety Report 5935598-5 (Version None)
Quarter: 2008Q4

REPORT INFORMATION
  Report Type: 
  Country: None (occurrence: None)
  Receive Date: 20081030
  Receipt Date: 20081021
  Transmission Date: 20090506
  Serious: Yes (Hospitalization)
  Sender: FDA-Public Use
  Company Number: B0542820A

PATIENT
  Age: 5 Month
  Sex: Female

DRUGS (1)
  1. VENTOLIN [Suspect]
     Indication: COUGH
     Route: 048
     Dates: start: 20080923, end: 20080923

REACTIONS (6)
  - ADVERSE DRUG REACTION [None]
  - ANXIETY [None]
  - COUGH [None]
  - DYSPNOEA [None]
  - ERYTHEMA [None]
  - URTICARIA [None]
